FAERS Safety Report 8358374-5 (Version None)
Quarter: 2012Q2

REPORT INFORMATION
  Report Type: 
  Country: None (occurrence: None)
  Receive Date: 20120514
  Receipt Date: 20110509
  Transmission Date: 20120825
  Serious: No
  Sender: FDA-Public Use
  Company Number: US-ALEXION-A201100677

PATIENT
  Sex: Male

DRUGS (6)
  1. SOLIRIS [Suspect]
     Indication: PAROXYSMAL NOCTURNAL HAEMOGLOBINURIA
     Dosage: 900 MG Q2W
     Route: 042
     Dates: start: 20100101
  2. ALLEGRA [Concomitant]
     Indication: HYPERSENSITIVITY
     Dosage: UNK QD PRN
     Route: 048
  3. CIPROFLOXACIN HCL [Concomitant]
     Indication: PROPHYLAXIS
  4. FISH OIL [Concomitant]
     Indication: ROUTINE HEALTH MAINTENANCE
     Dosage: UNK QD
     Route: 048
  5. IBUPROFEN [Concomitant]
     Indication: HEADACHE
     Dosage: 800 MG PRN
     Route: 048
  6. SALINE [Concomitant]
     Indication: EPISTAXIS
     Dosage: UNK PRN
     Route: 045

REACTIONS (9)
  - VOMITING [None]
  - OROPHARYNGEAL PAIN [None]
  - DIARRHOEA [None]
  - RHINORRHOEA [None]
  - FOOD POISONING [None]
  - NAUSEA [None]
  - WHEEZING [None]
  - PYREXIA [None]
  - CHILLS [None]
